FAERS Safety Report 5892936-X (Version None)
Quarter: 2008Q3

REPORT INFORMATION
  Report Type: 
  Country: None (occurrence: None)
  Receive Date: 20080922
  Receipt Date: 20080922
  Transmission Date: 20090109
  Serious: Yes (Hospitalization)
  Sender: FDA-Public Use
  Company Number: None

PATIENT
  Age: 58 Year
  Sex: Male
  Weight: 82.1011 kg

DRUGS (3)
  1. BEVACIZUMAB 7.5 MG/KG [Suspect]
     Indication: OESOPHAGEAL ADENOCARCINOMA
     Dosage: 7.5 EVERY 21 DAYS IV DRIP
     Route: 041
     Dates: start: 20080513, end: 20080903
  2. DOCETAXEL [Suspect]
     Indication: OESOPHAGEAL ADENOCARCINOMA
     Dosage: 70 EVERY 21 DAYS IV DRIP
     Route: 041
     Dates: start: 20080513, end: 20080903
  3. OXALIPLATIN 75 MG/M2 [Suspect]
     Indication: OESOPHAGEAL ADENOCARCINOMA
     Dosage: 75 EVERY 21 DAYS IV DRIP
     Route: 041
     Dates: start: 20080513, end: 20080903

REACTIONS (2)
  - DYSPNOEA [None]
  - PNEUMONIA [None]
